FAERS Safety Report 13207949 (Version 1)
Quarter: 2017Q1

REPORT INFORMATION
  Report Type: Spontaneous
  Country: NO (occurrence: NO)
  Receive Date: 20170209
  Receipt Date: 20170209
  Transmission Date: 20170428
  Serious: Yes (Hospitalization, Other)
  Sender: FDA-Public Use
  Company Number: NO-MYLANLABS-2017M1007273

PATIENT

DRUGS (1)
  1. CLADRIBINE. [Suspect]
     Active Substance: CLADRIBINE
     Indication: SYSTEMIC MASTOCYTOSIS
     Dosage: 0.12 MG/KG/DAY REPEATED COURSES ADMINISTERED OVER A 2 HOURS DAILY
     Route: 041

REACTIONS (1)
  - Progressive multifocal leukoencephalopathy [Unknown]
